FAERS Safety Report 7232339 (Version 22)
Quarter: 2014Q2

REPORT INFORMATION
  Report Type: Spontaneous
  Country: US (occurrence: US)
  Receive Date: 20091229
  Receipt Date: 20140424
  Transmission Date: 20141212
  Serious: Yes (Hospitalization, Other)
  Sender: FDA-Public Use
  Company Number: PHEH2009US17998

PATIENT
  Sex: Male

DRUGS (19)
  1. ZOMETA [Suspect]
     Indication: PLASMA CELL MYELOMA
     Dosage: 4 MG, QMO
     Route: 042
     Dates: start: 200508, end: 200511
  2. CARDURA [Concomitant]
     Route: 048
  3. GLIPIZIDE [Concomitant]
     Route: 048
  4. MEDROL [Concomitant]
  5. LISINOPRIL [Concomitant]
     Dosage: 10 MG, UNK
     Route: 048
  6. PROTONIX [Concomitant]
     Dosage: 40 MG, UNK
     Route: 048
  7. LEVAQUIN [Concomitant]
     Dosage: 500 MG, UNK
     Route: 048
  8. CIALIS [Concomitant]
  9. FLOMAX [Concomitant]
  10. AZITHROMYCIN [Concomitant]
  11. ROCEPHIN [Concomitant]
  12. FLAGYL [Concomitant]
  13. LORATADINE [Concomitant]
  14. OMNARIS [Concomitant]
  15. ZYRTEC [Concomitant]
  16. OMEPRAZOLE [Concomitant]
  17. AMBIEN [Concomitant]
  18. METFORMIN HYDROCHLORIDE [Concomitant]
  19. ZOFRAN [Concomitant]

REACTIONS (148)
  - Loss of consciousness [Unknown]
  - Osteonecrosis of jaw [Unknown]
  - Pain [Unknown]
  - Gingival pain [Unknown]
  - Disability [Unknown]
  - Deformity [Unknown]
  - Impaired work ability [Unknown]
  - Emotional distress [Unknown]
  - Anhedonia [Unknown]
  - Anaemia [Unknown]
  - Haemorrhoids [Unknown]
  - Neoplasm prostate [Unknown]
  - Haematuria [Unknown]
  - Dyspnoea [Unknown]
  - Back pain [Unknown]
  - Osteoarthritis [Unknown]
  - Exostosis [Unknown]
  - Rectal haemorrhage [Unknown]
  - Abdominal distension [Unknown]
  - Abdominal discomfort [Unknown]
  - Diarrhoea [Unknown]
  - Haematochezia [Unknown]
  - Gastroenteritis [Unknown]
  - Colitis [Unknown]
  - Syncope [Unknown]
  - Diabetes mellitus [Recovered/Resolved]
  - Sepsis [Unknown]
  - Pneumonia [Unknown]
  - Decreased appetite [Unknown]
  - Hyponatraemia [Unknown]
  - Bronchitis [Unknown]
  - Chronic sinusitis [Unknown]
  - Hypertension [Unknown]
  - Gastritis [Unknown]
  - Renal failure chronic [Unknown]
  - Lung infiltration [Unknown]
  - Pulmonary mass [Unknown]
  - Aortic calcification [Unknown]
  - Tricuspid valve incompetence [Unknown]
  - Mitral valve incompetence [Unknown]
  - Haemorrhoidal haemorrhage [Unknown]
  - Erectile dysfunction [Unknown]
  - Benign prostatic hyperplasia [Recovered/Resolved]
  - Lower urinary tract symptoms [Unknown]
  - Urinary tract obstruction [Unknown]
  - Aortic arteriosclerosis [Unknown]
  - Left ventricular hypertrophy [Unknown]
  - Respiratory failure [Unknown]
  - Tachycardia [Unknown]
  - Anorectal disorder [Unknown]
  - Proctalgia [Unknown]
  - Anal pruritus [Unknown]
  - Face oedema [Unknown]
  - Compression fracture [Unknown]
  - Haemangioma [Unknown]
  - Upper respiratory tract infection [Unknown]
  - Cough [Unknown]
  - Exposed bone in jaw [Unknown]
  - Periodontitis [Unknown]
  - Neuropathy peripheral [Unknown]
  - Fatigue [Unknown]
  - Systemic inflammatory response syndrome [Unknown]
  - Acidosis [Unknown]
  - Agranulocytosis [Unknown]
  - Thrombocytopenia [Unknown]
  - Device related infection [Unknown]
  - Graft infection [Unknown]
  - Inflammation [Unknown]
  - Atelectasis [Unknown]
  - Magnesium metabolism disorder [Unknown]
  - Hypotension [Unknown]
  - Visual impairment [Unknown]
  - Convulsion [Unknown]
  - Incontinence [Unknown]
  - Lumbar radiculopathy [Unknown]
  - Restrictive pulmonary disease [Unknown]
  - Sinus polyp [Unknown]
  - Nasal septum deviation [Unknown]
  - Osteopenia [Unknown]
  - Kyphosis [Unknown]
  - Gastrointestinal infection [Unknown]
  - Arthropathy [Unknown]
  - Vascular calcification [Unknown]
  - Renal cyst [Unknown]
  - Pyrexia [Unknown]
  - Chest pain [Unknown]
  - Osteosclerosis [Unknown]
  - Musculoskeletal chest pain [Unknown]
  - Pulmonary fibrosis [Unknown]
  - Emphysema [Unknown]
  - Bone cyst [Unknown]
  - Fibrous histiocytoma [Recovered/Resolved]
  - Rib fracture [Unknown]
  - Rib deformity [Unknown]
  - Intervertebral disc space narrowing [Unknown]
  - Intervertebral disc protrusion [Unknown]
  - Lumbar spinal stenosis [Unknown]
  - Vertebral foraminal stenosis [Unknown]
  - Lordosis [Unknown]
  - Osteoporosis [Unknown]
  - Interstitial lung disease [Unknown]
  - Spinal osteoarthritis [Unknown]
  - Sexual dysfunction [Unknown]
  - Plasma cell myeloma [Unknown]
  - Malignant neoplasm progression [Unknown]
  - Nephrolithiasis [Unknown]
  - Coronary artery disease [Unknown]
  - Chronic obstructive pulmonary disease [Unknown]
  - Asthma [Unknown]
  - Dizziness [Unknown]
  - Prostate cancer [Unknown]
  - Second primary malignancy [Unknown]
  - Micturition urgency [Unknown]
  - Pollakiuria [Unknown]
  - Overweight [Unknown]
  - Renal impairment [Unknown]
  - Paranasal sinus discomfort [Unknown]
  - Nasal congestion [Unknown]
  - Discomfort [Unknown]
  - Cerumen impaction [Unknown]
  - Hypothyroidism [Unknown]
  - Goitre [Unknown]
  - Vomiting [Unknown]
  - Nausea [Unknown]
  - Hypoaesthesia [Unknown]
  - Rhinorrhoea [Unknown]
  - Headache [Unknown]
  - Bone pain [Unknown]
  - Renal failure acute [Unknown]
  - Primary sequestrum [Unknown]
  - Stomatitis [Unknown]
  - Bone lesion [Unknown]
  - Gastrointestinal haemorrhage [Unknown]
  - Coagulopathy [Unknown]
  - Rouleaux formation [Unknown]
  - Oral pain [Unknown]
  - Vitamin B12 decreased [Unknown]
  - Lung disorder [Unknown]
  - Pneumothorax [Unknown]
  - Pleural effusion [Unknown]
  - Blood triglycerides increased [Unknown]
  - Gout [Unknown]
  - Fall [Unknown]
  - Muscle spasms [Unknown]
  - Febrile neutropenia [Unknown]
  - Mucosal inflammation [Unknown]
  - Liver disorder [Unknown]
  - Insomnia [Unknown]
